FAERS Safety Report 15639787 (Version 3)
Quarter: 2018Q4

REPORT INFORMATION
  Report Type: Report from Study
  Country: US (occurrence: US)
  Receive Date: 20181120
  Receipt Date: 20181205
  Transmission Date: 20190205
  Serious: Yes (Hospitalization, Other)
  Sender: FDA-Public Use
  Company Number: US-GILEAD-2018-0370779

PATIENT
  Age: 7 Year
  Sex: Female
  Weight: 20.9 kg

DRUGS (6)
  1. AMBRISENTAN [Suspect]
     Active Substance: AMBRISENTAN
     Indication: PULMONARY ARTERIAL HYPERTENSION
     Dosage: 5 MG, QD
     Route: 048
     Dates: start: 20180731
  2. WARFARIN [Concomitant]
     Active Substance: WARFARIN
  3. UPTRAVI [Concomitant]
     Active Substance: SELEXIPAG
  4. IRON [Concomitant]
     Active Substance: IRON
  5. LOSARTAN. [Concomitant]
     Active Substance: LOSARTAN
  6. ADCIRCA [Concomitant]
     Active Substance: TADALAFIL

REACTIONS (10)
  - Cardiac arrest [Unknown]
  - Headache [Recovered/Resolved]
  - Lip discolouration [Not Recovered/Not Resolved]
  - Lethargy [Not Recovered/Not Resolved]
  - Dyspnoea [Not Recovered/Not Resolved]
  - Clostridium difficile infection [Unknown]
  - Anaemia [Unknown]
  - Pulmonary hypertension [Not Recovered/Not Resolved]
  - Pyrexia [Recovered/Resolved]
  - Off label use [Not Recovered/Not Resolved]

NARRATIVE: CASE EVENT DATE: 20180731
